FAERS Safety Report 5855742-8 (Version None)
Quarter: 2008Q3

REPORT INFORMATION
  Report Type: 
  Country: None (occurrence: None)
  Receive Date: 20080821
  Receipt Date: 20080821
  Transmission Date: 20090109
  Serious: No
  Sender: FDA-Public Use
  Company Number: None

PATIENT
  Age: 23 Year
  Sex: Female

DRUGS (4)
  1. PHENYTOIN [Suspect]
     Dates: start: 20051224, end: 20060617
  2. CARBAMAZEPINE [Suspect]
     Dates: start: 20060119, end: 20060211
  3. PENICILLIN [Concomitant]
  4. PAROXETINE HCL [Concomitant]

REACTIONS (15)
  - ACUTE HEPATIC FAILURE [None]
  - ALANINE AMINOTRANSFERASE INCREASED [None]
  - ASPARTATE AMINOTRANSFERASE INCREASED [None]
  - BLISTER [None]
  - BLOOD ALKALINE PHOSPHATASE INCREASED [None]
  - BLOOD BILIRUBIN INCREASED [None]
  - COAGULOPATHY [None]
  - DRUG HYPERSENSITIVITY [None]
  - GRAND MAL CONVULSION [None]
  - LIVER FUNCTION TEST ABNORMAL [None]
  - LIVER INJURY [None]
  - LYMPHADENOPATHY [None]
  - PHARYNGITIS STREPTOCOCCAL [None]
  - RENAL FAILURE [None]
  - RENAL TUBULAR NECROSIS [None]
